FAERS Safety Report 26175739 (Version 1)
Quarter: 2025Q4

REPORT INFORMATION
  Report Type: Report from Study
  Country: US (occurrence: US)
  Receive Date: 20251218
  Receipt Date: 20251218
  Transmission Date: 20260118
  Serious: No
  Sender: DECIPHERA PHARMACEUTICALS
  Company Number: US-DECIPHERA PHARMACEUTICALS LLC-2025US001539

PATIENT
  Age: 33 Year
  Sex: Female
  Weight: 121.98 kg

DRUGS (1)
  1. ROMVIMZA [Suspect]
     Active Substance: VIMSELTINIB
     Indication: Product used for unknown indication
     Dosage: 30 MILLIGRAM, TWICE WEEKLY
     Dates: start: 20251020

REACTIONS (2)
  - Arthralgia [Recovering/Resolving]
  - Product dose omission in error [Unknown]

NARRATIVE: CASE EVENT DATE: 20250101
